FAERS Safety Report 7907125-4 (Version None)
Quarter: 2011Q4

REPORT INFORMATION
  Report Type: 
  Country: None (occurrence: None)
  Receive Date: 20111110
  Receipt Date: 20110207
  Transmission Date: 20120403
  Serious: No
  Sender: FDA-Public Use
  Company Number: US-ASTRAZENECA-2011SE07443

PATIENT
  Age: 18297 Day
  Sex: Female

DRUGS (17)
  1. PLAVIX [Concomitant]
  2. MIRALAX [Concomitant]
  3. FLEXERIL [Concomitant]
     Indication: MUSCLE TIGHTNESS
  4. ZETIA [Concomitant]
  5. SYNTHROID [Concomitant]
  6. VALTREX [Concomitant]
  7. CELEXA [Concomitant]
  8. BYSTOLIC [Concomitant]
  9. CRESTOR [Concomitant]
  10. AMBIEN [Concomitant]
  11. DIPHENHYDRAMINE HCL [Concomitant]
  12. LISINOPRIL [Suspect]
     Route: 048
     Dates: start: 20100901
  13. BUPROPION HCL [Concomitant]
  14. HUMALOG [Concomitant]
  15. NITROSTAT [Concomitant]
  16. PRILOSEC [Concomitant]
  17. THIMEROSAL [Concomitant]

REACTIONS (2)
  - PATHOLOGICAL GAMBLING [None]
  - COUGH [None]
